FAERS Safety Report 4975167-7 (Version None)
Quarter: 2006Q2

REPORT INFORMATION
  Report Type: 
  Country: None (occurrence: None)
  Receive Date: 20060417
  Receipt Date: 20060417
  Transmission Date: 20061013
  Serious: Yes (Other)
  Sender: FDA-Public Use
  Company Number: None

PATIENT
  Sex: Female
  Weight: 125.1928 kg

DRUGS (2)
  1. ZOLEDRONIC ACID 4 MG IV NOVARTIS [Suspect]
     Indication: BREAST CANCER METASTATIC
     Dosage: 4 MG MONTHLY IV DRIP
     Route: 041
     Dates: start: 20030201, end: 20040101
  2. ZOLEDRONIC ACID 4 MG IV NOVARTIS [Suspect]
     Indication: METASTASES TO BONE
     Dosage: 4 MG MONTHLY IV DRIP
     Route: 041
     Dates: start: 20030201, end: 20040101

REACTIONS (2)
  - OSTEOMYELITIS [None]
  - OSTEONECROSIS [None]
